FAERS Safety Report 11703206 (Version 1)
Quarter: 2015Q4

REPORT INFORMATION
  Report Type: Spontaneous
  Country: None (occurrence: FR)
  Receive Date: 20151105
  Receipt Date: 20151105
  Transmission Date: 20160304
  Serious: Yes (Hospitalization)
  Sender: FDA-Public Use
  Company Number: FR-MEDAC PHARMA, INC.-1043827

PATIENT
  Age: 69 Year
  Sex: Male

DRUGS (7)
  1. BENDAMUSTINE [Concomitant]
     Active Substance: BENDAMUSTINE
     Dates: start: 20150602, end: 20150620
  2. DEPOCYT [Suspect]
     Active Substance: CYTARABINE
     Route: 037
  3. METOJECT [Suspect]
     Active Substance: METHOTREXATE SODIUM
     Indication: WALDENSTROM^S MACROGLOBULINAEMIA
     Route: 037
  4. CALCIUM FOLINATE [Concomitant]
     Active Substance: LEUCOVORIN CALCIUM
     Dates: start: 201503, end: 20150324
  5. ARZERRA [Concomitant]
     Active Substance: OFATUMUMAB
     Dates: start: 20150602, end: 20150620
  6. IMBRUVICA [Suspect]
     Active Substance: IBRUTINIB
     Route: 048
     Dates: start: 20150723, end: 201510
  7. RITUXIMAB [Concomitant]
     Active Substance: RITUXIMAB
     Dates: start: 201503

REACTIONS (2)
  - Cauda equina syndrome [Recovering/Resolving]
  - Product use issue [None]

NARRATIVE: CASE EVENT DATE: 201503
